FAERS Safety Report 9152553 (Version 1)
Quarter: 2013Q1

REPORT INFORMATION
  Report Type: Spontaneous
  Country: US (occurrence: US)
  Receive Date: 20130308
  Receipt Date: 20130308
  Transmission Date: 20140127
  Serious: No
  Sender: FDA-Public Use
  Company Number: US-ENDO PHARMACEUTICALS INC.-OPCR20120966

PATIENT
  Sex: Male
  Weight: 97.61 kg

DRUGS (2)
  1. OPANA ER 30MG [Suspect]
     Indication: INTERVERTEBRAL DISC DEGENERATION
     Route: 048
     Dates: start: 201203
  2. OPANA ER 30MG [Concomitant]
     Indication: INTERVERTEBRAL DISC DEGENERATION
     Route: 048
     Dates: end: 2012

REACTIONS (3)
  - Flatulence [Not Recovered/Not Resolved]
  - Abdominal discomfort [Not Recovered/Not Resolved]
  - Drug ineffective [Not Recovered/Not Resolved]
